FAERS Safety Report 10188981 (Version 1)
Quarter: 2014Q2

REPORT INFORMATION
  Report Type: Report from Study
  Country: CA (occurrence: CA)
  Receive Date: 20140522
  Receipt Date: 20140522
  Transmission Date: 20141212
  Serious: Yes (Hospitalization)
  Sender: FDA-Public Use
  Company Number: PHHO2014CA007054

PATIENT
  Age: 52 Year
  Sex: Female

DRUGS (5)
  1. FTY 720 [Suspect]
     Indication: MULTIPLE SCLEROSIS
     Dosage: 0.5 MG, QD
     Route: 048
     Dates: start: 20110407
  2. VALACYCLOVIR [Concomitant]
     Indication: HERPES VIRUS INFECTION
     Dosage: 500 MG, UNK
     Route: 048
  3. LOSARTAN [Concomitant]
     Dosage: 12.5 MG, QD
     Route: 048
  4. VITAMIN D [Concomitant]
     Dosage: 2000 IU, UNK
     Route: 048
  5. TYLENOL WITH CODEINE [Concomitant]
     Dosage: 1 DF, PRN
     Route: 048

REACTIONS (1)
  - Pericarditis [Recovering/Resolving]
